FAERS Safety Report 6526592-4 (Version None)
Quarter: 2009Q4

REPORT INFORMATION
  Report Type: 
  Country: None (occurrence: None)
  Receive Date: 20091230
  Receipt Date: 20091223
  Transmission Date: 20100525
  Serious: Yes (Hospitalization)
  Sender: FDA-Public Use
  Company Number: WAES 0910USA03332

PATIENT
  Age: 54 Year
  Sex: Female
  Weight: 64.4108 kg

DRUGS (16)
  1. DECADRON [Suspect]
     Dosage: PO
     Route: 048
  2. PACLITAXEL [Suspect]
     Indication: NON-SMALL CELL LUNG CANCER
     Dosage: 310 MG/Q3W/IV
     Route: 042
     Dates: start: 20090609, end: 20090901
  3. CARBOPLATIN [Suspect]
     Indication: NON-SMALL CELL LUNG CANCER
     Dosage: 543 MG/Q3W/IV
     Route: 042
     Dates: start: 20090609, end: 20090901
  4. CP-751,871 UNK [Suspect]
     Indication: NON-SMALL CELL LUNG CANCER
     Dosage: 1320 MG/Q3W/IV
     Route: 042
     Dates: start: 20090609, end: 20090901
  5. PREDNISONE [Suspect]
  6. ADVAIR DISKUS 100/50 [Concomitant]
  7. ATIVAN [Concomitant]
  8. DARVOCET-N 100 [Concomitant]
  9. FELDENE [Concomitant]
  10. LUNESTA [Concomitant]
  11. NOVOLOG [Concomitant]
  12. PLAQUENIL [Concomitant]
  13. FOLIC ACID [Concomitant]
  14. MAGNESIUM OXIDE [Concomitant]
  15. OXYCODONE [Concomitant]
  16. VITAMIN E [Concomitant]

REACTIONS (12)
  - BLOOD SODIUM DECREASED [None]
  - BRONCHOPULMONARY ASPERGILLOSIS [None]
  - CHEST X-RAY ABNORMAL [None]
  - DECREASED APPETITE [None]
  - DYSPNOEA [None]
  - FATIGUE [None]
  - HAEMATOCRIT DECREASED [None]
  - HAEMOGLOBIN DECREASED [None]
  - LYMPHADENOPATHY MEDIASTINAL [None]
  - PAIN [None]
  - PRODUCTIVE COUGH [None]
  - SPUTUM DISCOLOURED [None]
